FAERS Safety Report 16992457 (Version 1)
Quarter: 2019Q4

REPORT INFORMATION
  Report Type: Spontaneous
  Country: US (occurrence: US)
  Receive Date: 20190920
  Receipt Date: 20190920
  Transmission Date: 20200122
  Serious: Yes (Hospitalization)
  Sender: FDA-Public Use
  Company Number: None

PATIENT
  Age: 72 Year
  Sex: Male

DRUGS (1)
  1. BUPIVACAINE/EPINEPHRINE [Suspect]
     Active Substance: BUPIVACAINE\EPINEPHRINE
     Indication: ANAESTHESIA
     Dates: start: 20190712, end: 20190712

REACTIONS (2)
  - Postoperative hypotension [None]
  - Procedural dizziness [None]

NARRATIVE: CASE EVENT DATE: 20190712
